APPROVED DRUG PRODUCT: IBU
Active Ingredient: IBUPROFEN
Strength: 600MG
Dosage Form/Route: TABLET;ORAL
Application: A070088 | Product #001
Applicant: BASF CORP
Approved: Feb 8, 1985 | RLD: No | RS: No | Type: DISCN